FAERS Safety Report 7528626-7 (Version None)
Quarter: 2011Q2

REPORT INFORMATION
  Report Type: 
  Country: None (occurrence: None)
  Receive Date: 20110607
  Receipt Date: 20040907
  Transmission Date: 20111010
  Serious: Yes (Death, Life-Threatening)
  Sender: FDA-Public Use
  Company Number: PHHO2004CA02041

PATIENT
  Sex: Female

DRUGS (1)
  1. CLOZARIL [Suspect]
     Indication: SCHIZOPHRENIA
     Dates: start: 20020917, end: 20040401

REACTIONS (3)
  - PAIN [None]
  - GASTROINTESTINAL DISORDER [None]
  - COLON CANCER METASTATIC [None]
